FAERS Safety Report 20410718 (Version 1)
Quarter: 2022Q1

REPORT INFORMATION
  Report Type: Spontaneous
  Country: DE (occurrence: DE)
  Receive Date: 20220201
  Receipt Date: 20220201
  Transmission Date: 20220423
  Serious: Yes (Hospitalization, Other)
  Sender: FDA-Public Use
  Company Number: DE-NOVARTISPH-NVSC2019DE104636

PATIENT
  Age: 79 Year
  Sex: Female
  Weight: 70 kg

DRUGS (19)
  1. ELTROMBOPAG OLAMINE [Suspect]
     Active Substance: ELTROMBOPAG OLAMINE
     Indication: Thrombocytopenia
     Dosage: 50 MG (1-0-0)
     Route: 065
     Dates: start: 20180426, end: 201805
  2. ELTROMBOPAG OLAMINE [Suspect]
     Active Substance: ELTROMBOPAG OLAMINE
     Indication: Aplastic anaemia
     Dosage: 75 MG (1-0-0)
     Route: 065
     Dates: start: 20180516, end: 2018
  3. ELTROMBOPAG OLAMINE [Suspect]
     Active Substance: ELTROMBOPAG OLAMINE
     Dosage: 150 MG, QD (1-0-0)
     Route: 065
     Dates: start: 201806, end: 201807
  4. CYCLOSPORINE [Suspect]
     Active Substance: CYCLOSPORINE
     Indication: Aplastic anaemia
     Dosage: 250 MG (1-0-1)
     Route: 048
     Dates: start: 20180426, end: 201805
  5. CYCLOSPORINE [Suspect]
     Active Substance: CYCLOSPORINE
     Indication: Thrombocytopenia
     Dosage: 250 MG (1-0-1)
     Route: 048
     Dates: start: 201805, end: 2018
  6. CYCLOSPORINE [Suspect]
     Active Substance: CYCLOSPORINE
     Dosage: 150 MG (1-0-1)
     Route: 048
     Dates: start: 201806, end: 2018
  7. CYCLOSPORINE [Suspect]
     Active Substance: CYCLOSPORINE
     Dosage: 50 MG (3-0-2)
     Route: 048
     Dates: start: 2018
  8. PANTOPRAZOLE [Concomitant]
     Active Substance: PANTOPRAZOLE
     Indication: Product used for unknown indication
     Dosage: 1-0-1
     Route: 065
     Dates: end: 2018
  9. NEBIVOLOL [Concomitant]
     Active Substance: NEBIVOLOL
     Indication: Hypertension
     Dosage: 1-0-0
     Route: 048
  10. CANDESARTAN [Concomitant]
     Active Substance: CANDESARTAN
     Indication: Product used for unknown indication
     Dosage: 16 MG (1-0-1)
     Route: 048
     Dates: end: 201807
  11. CANDESARTAN [Concomitant]
     Active Substance: CANDESARTAN
     Dosage: 8 MG (1-0-1)
     Route: 048
     Dates: start: 20180801, end: 2018
  12. CANDESARTAN [Concomitant]
     Active Substance: CANDESARTAN
     Dosage: 16 MG (1-0-1)
     Route: 048
     Dates: end: 201807
  13. MAGNESIUM [Concomitant]
     Active Substance: MAGNESIUM
     Indication: Product used for unknown indication
     Dosage: 1-1-1-1 (DRAGEES)
     Route: 048
  14. LEVOTHYROXINE [Concomitant]
     Active Substance: LEVOTHYROXINE
     Indication: Product used for unknown indication
     Dosage: 150 UG, QD
     Route: 065
     Dates: start: 2016
  15. LEVOTHYROXINE [Concomitant]
     Active Substance: LEVOTHYROXINE
     Dosage: 75 UG (1-0-0)
     Route: 065
     Dates: end: 2018
  16. AMLODIPINE [Concomitant]
     Active Substance: AMLODIPINE BESYLATE
     Indication: Product used for unknown indication
     Dosage: 1-0-0
     Route: 048
     Dates: end: 201805
  17. AMLODIPINE [Concomitant]
     Active Substance: AMLODIPINE BESYLATE
     Dosage: 1-0-0
     Route: 048
     Dates: start: 201806, end: 2018
  18. AMLODIPINE [Concomitant]
     Active Substance: AMLODIPINE BESYLATE
     Dosage: 1-0-0
     Route: 048
     Dates: start: 2018
  19. LEVOFLOXACIN [Concomitant]
     Active Substance: LEVOFLOXACIN
     Indication: Antibiotic prophylaxis
     Dosage: 1-0-0
     Route: 065

REACTIONS (26)
  - Agranulocytosis [Unknown]
  - Epistaxis [Unknown]
  - Osteolysis [Unknown]
  - Febrile infection [Unknown]
  - Aphthous ulcer [Unknown]
  - Klebsiella sepsis [Unknown]
  - Aplastic anaemia [Unknown]
  - Chills [Not Recovered/Not Resolved]
  - Pyrexia [Unknown]
  - Device related thrombosis [Unknown]
  - Haemorrhage [Unknown]
  - Cholestasis [Recovering/Resolving]
  - Blood bilirubin increased [Unknown]
  - Hepatocellular injury [Unknown]
  - Pneumonia fungal [Unknown]
  - Thrombocytopenia [Unknown]
  - Haematoma [Unknown]
  - Toxicity to various agents [Recovering/Resolving]
  - Atelectasis [Unknown]
  - Pancreatic steatosis [Unknown]
  - Skin ulcer [Unknown]
  - Musculoskeletal pain [Unknown]
  - Pain in extremity [Unknown]
  - Mouth haemorrhage [Unknown]
  - Fatigue [Unknown]
  - Drug ineffective [Unknown]

NARRATIVE: CASE EVENT DATE: 20180101
